FAERS Safety Report 26066953 (Version 2)
Quarter: 2025Q4

REPORT INFORMATION
  Report Type: Spontaneous
  Country: EU (occurrence: EU)
  Receive Date: 20251119
  Receipt Date: 20251202
  Transmission Date: 20260118
  Serious: Yes (Disabling, Other)
  Sender: JOHNSON AND JOHNSON
  Company Number: EU-EUROCEPT-EC20250201

PATIENT
  Age: 32 Year
  Sex: Male

DRUGS (50)
  1. RISPERIDONE [Suspect]
     Active Substance: RISPERIDONE
     Indication: Mania
     Route: 065
  2. RISPERIDONE [Suspect]
     Active Substance: RISPERIDONE
     Indication: Bipolar I disorder
  3. RISPERIDONE [Suspect]
     Active Substance: RISPERIDONE
     Indication: Autism spectrum disorder
  4. RISPERIDONE [Suspect]
     Active Substance: RISPERIDONE
     Indication: Substance use disorder
  5. RISPERIDONE [Suspect]
     Active Substance: RISPERIDONE
  6. RISPERIDONE [Suspect]
     Active Substance: RISPERIDONE
  7. OLANZAPINE [Suspect]
     Active Substance: OLANZAPINE
     Indication: Mania
  8. OLANZAPINE [Suspect]
     Active Substance: OLANZAPINE
     Indication: Bipolar I disorder
  9. OLANZAPINE [Suspect]
     Active Substance: OLANZAPINE
     Indication: Substance use disorder
  10. OLANZAPINE [Suspect]
     Active Substance: OLANZAPINE
     Indication: Autism spectrum disorder
  11. CLONAZEPAM [Suspect]
     Active Substance: CLONAZEPAM
     Indication: Product used for unknown indication
  12. CLONAZEPAM [Suspect]
     Active Substance: CLONAZEPAM
     Dosage: DOSE REDUCED
  13. HALOPERIDOL [Suspect]
     Active Substance: HALOPERIDOL
     Indication: Mania
     Route: 065
  14. HALOPERIDOL [Suspect]
     Active Substance: HALOPERIDOL
     Indication: Bipolar I disorder
  15. HALOPERIDOL [Suspect]
     Active Substance: HALOPERIDOL
     Indication: Autism spectrum disorder
  16. HALOPERIDOL [Suspect]
     Active Substance: HALOPERIDOL
     Indication: Substance use disorder
  17. ARIPIPRAZOLE [Suspect]
     Active Substance: ARIPIPRAZOLE
     Indication: Mania
  18. MIDOMAFETAMINE [Suspect]
     Active Substance: MIDOMAFETAMINE
     Indication: Mania
  19. QUETIAPINE [Concomitant]
     Active Substance: QUETIAPINE
     Indication: Mania
  20. QUETIAPINE [Concomitant]
     Active Substance: QUETIAPINE
     Indication: Autism spectrum disorder
  21. QUETIAPINE [Concomitant]
     Active Substance: QUETIAPINE
     Indication: Bipolar disorder
  22. QUETIAPINE [Concomitant]
     Active Substance: QUETIAPINE
     Indication: Substance use disorder
  23. VALPROIC ACID [Concomitant]
     Active Substance: VALPROIC ACID
     Indication: Mania
  24. VALPROIC ACID [Concomitant]
     Active Substance: VALPROIC ACID
     Indication: Substance use disorder
  25. VALPROIC ACID [Concomitant]
     Active Substance: VALPROIC ACID
     Indication: Autism spectrum disorder
  26. VALPROIC ACID [Concomitant]
     Active Substance: VALPROIC ACID
     Indication: Bipolar disorder
  27. VENLAFAXINE [Concomitant]
     Active Substance: VENLAFAXINE HYDROCHLORIDE
     Indication: Mania
  28. VENLAFAXINE [Concomitant]
     Active Substance: VENLAFAXINE HYDROCHLORIDE
     Indication: Bipolar disorder
  29. VENLAFAXINE [Concomitant]
     Active Substance: VENLAFAXINE HYDROCHLORIDE
     Indication: Autism spectrum disorder
  30. VENLAFAXINE [Concomitant]
     Active Substance: VENLAFAXINE HYDROCHLORIDE
     Indication: Substance use disorder
  31. PIPAMPERONE [Concomitant]
     Active Substance: PIPAMPERONE
     Indication: Mania
  32. PIPAMPERONE [Concomitant]
     Active Substance: PIPAMPERONE
     Indication: Bipolar disorder
  33. PIPAMPERONE [Concomitant]
     Active Substance: PIPAMPERONE
     Indication: Autism spectrum disorder
  34. PIPAMPERONE [Concomitant]
     Active Substance: PIPAMPERONE
     Indication: Substance use disorder
  35. LAMOTRIGINE [Concomitant]
     Active Substance: LAMOTRIGINE
     Indication: Mania
     Route: 065
  36. LAMOTRIGINE [Concomitant]
     Active Substance: LAMOTRIGINE
     Indication: Autism spectrum disorder
  37. LAMOTRIGINE [Concomitant]
     Active Substance: LAMOTRIGINE
     Indication: Substance use disorder
  38. LAMOTRIGINE [Concomitant]
     Active Substance: LAMOTRIGINE
     Indication: Bipolar disorder
  39. MIRTAZAPINE [Concomitant]
     Active Substance: MIRTAZAPINE
     Indication: Mania
     Route: 065
  40. MIRTAZAPINE [Concomitant]
     Active Substance: MIRTAZAPINE
     Indication: Bipolar disorder
  41. MIRTAZAPINE [Concomitant]
     Active Substance: MIRTAZAPINE
     Indication: Autism spectrum disorder
  42. MIRTAZAPINE [Concomitant]
     Active Substance: MIRTAZAPINE
     Indication: Substance use disorder
  43. LITHIUM [Concomitant]
     Active Substance: LITHIUM
     Indication: Mania
     Route: 065
  44. LITHIUM [Concomitant]
     Active Substance: LITHIUM
     Indication: Autism spectrum disorder
  45. LITHIUM [Concomitant]
     Active Substance: LITHIUM
     Indication: Bipolar disorder
  46. LITHIUM [Concomitant]
     Active Substance: LITHIUM
     Indication: Substance use disorder
  47. PENFLURIDOL [Concomitant]
     Active Substance: PENFLURIDOL
     Indication: Mania
     Route: 065
  48. PENFLURIDOL [Concomitant]
     Active Substance: PENFLURIDOL
     Indication: Bipolar disorder
  49. PENFLURIDOL [Concomitant]
     Active Substance: PENFLURIDOL
     Indication: Autism spectrum disorder
  50. PENFLURIDOL [Concomitant]
     Active Substance: PENFLURIDOL
     Indication: Substance use disorder

REACTIONS (9)
  - Suicidal ideation [Unknown]
  - Oscillopsia [Recovered/Resolved]
  - Photopsia [Recovered/Resolved]
  - Anxiety [Recovered/Resolved]
  - Visual impairment [Recovered/Resolved]
  - Vision blurred [Recovered/Resolved]
  - Paroxysmal perceptual alteration [Recovered/Resolved]
  - Hyperventilation [Unknown]
  - Off label use [Not Recovered/Not Resolved]
